FAERS Safety Report 8791447 (Version 3)
Quarter: 2013Q1

REPORT INFORMATION
  Report Type: Spontaneous
  Country: US (occurrence: None)
  Receive Date: 20120912
  Receipt Date: 20121207
  Transmission Date: 20140127
  Serious: Yes (Death, Hospitalization)
  Sender: FDA-Public Use
  Company Number: 2012-0790

PATIENT
  Age: 63 Year
  Sex: Male
  Weight: 73.03 kg

DRUGS (3)
  1. KYPROLIS [Suspect]
     Indication: PRODUCT USED FOR UNKNOWN INDICATION
     Dosage: (38 MG, 2 IN 1 D)
     Route: 042
     Dates: start: 20120801, end: 20120816
  2. DEXAMETHASONE (DEXAMETHASONE) (DEXAMETHASONE) [Suspect]
  3. CYTOXAN (CYCLOPHOSPHAMIDE) (CYCLOPHOSPHAMIDE) [Concomitant]

REACTIONS (10)
  - Death [None]
  - Headache [None]
  - Upper-airway cough syndrome [None]
  - Oropharyngeal pain [None]
  - Pyrexia [None]
  - Fall [None]
  - Mental status changes [None]
  - Subdural haematoma [None]
  - White blood cell count decreased [None]
  - Haemoglobin decreased [None]
